FAERS Safety Report 8655103 (Version 3)
Quarter: 2012Q4

REPORT INFORMATION
  Report Type: 
  Country: GB (occurrence: GB)
  Receive Date: 20120709
  Receipt Date: 20121107
  Transmission Date: 20130627
  Serious: No
  Sender: FDA-Public Use
  Company Number: GB-ABBOTT-12P-167-0951754-00

PATIENT
  Age: 45 Year
  Sex: Male
  Weight: 108 kg

DRUGS (4)
  1. HUMIRA [Suspect]
     Indication: PSORIASIS
     Route: 058
     Dates: start: 2011
  2. UNSPECIFIED MEDICATION [Concomitant]
     Indication: HYPERTENSION
  3. CO-CODAMOL [Concomitant]
     Indication: PRODUCT USED FOR UNKNOWN INDICATION
     Dosage: ON + OFF
     Dates: start: 201109
  4. TRAMADOL [Concomitant]
     Indication: PRODUCT USED FOR UNKNOWN INDICATION
     Dosage: ON + OFF
     Route: 048
     Dates: start: 201206

REACTIONS (4)
  - Joint swelling [Recovered/Resolved]
  - Face oedema [Recovered/Resolved]
  - Arthralgia [Recovered/Resolved]
  - Malaise [Recovered/Resolved]
